FAERS Safety Report 17930882 (Version 1)
Quarter: 2020Q2

REPORT INFORMATION
  Report Type: Spontaneous
  Country: FR (occurrence: FR)
  Receive Date: 20200623
  Receipt Date: 20200623
  Transmission Date: 20200714
  Serious: Yes (Other)
  Sender: FDA-Public Use
  Company Number: FR-TEVA-2020-FR-1789710

PATIENT
  Age: 64 Year
  Sex: Male

DRUGS (12)
  1. ECONAZOLE. [Concomitant]
     Active Substance: ECONAZOLE NITRATE
     Indication: FUNGAL INFECTION
     Dosage: 1 APPLICATION MORNING AND EVENING, 2 DF
     Route: 003
     Dates: start: 20170720, end: 20170721
  2. BICARBONATE DE SODIUM [Concomitant]
     Active Substance: SODIUM BICARBONATE
  3. FORLAX [Concomitant]
     Active Substance: POLYETHYLENE GLYCOL 4000
  4. AZANTAC [Concomitant]
     Active Substance: RANITIDINE HYDROCHLORIDE
     Indication: GASTROOESOPHAGEAL REFLUX DISEASE
     Dosage: 150 MG
     Route: 048
     Dates: start: 20170529, end: 20170720
  5. AMLODIPINE [Concomitant]
     Active Substance: AMLODIPINE BESYLATE
     Dosage: 10 MILLIGRAM DAILY; THE MORNING
     Route: 048
     Dates: start: 20170723
  6. CELLCEPT [Suspect]
     Active Substance: MYCOPHENOLATE MOFETIL\MYCOPHENOLATE MOFETIL HYDROCHLORIDE
     Indication: PROPHYLAXIS AGAINST TRANSPLANT REJECTION
     Dosage: MONDAY AND THURSDAY, 1000 MG
     Route: 048
     Dates: start: 20170529, end: 20170720
  7. PROGRAF [Suspect]
     Active Substance: TACROLIMUS
     Indication: PROPHYLAXIS AGAINST TRANSPLANT REJECTION
     Dosage: 4 MILLIGRAM DAILY; MORNING AND EVENING, 2 MG
     Route: 048
     Dates: start: 20170529, end: 20170726
  8. BACTRIM [Suspect]
     Active Substance: SULFAMETHOXAZOLE\TRIMETHOPRIM
     Indication: RENAL TRANSPLANT
     Dosage: MONDAY AND THURSDAY, 2 DF
     Route: 048
     Dates: start: 20170529, end: 20170720
  9. ROVALCYTE [Suspect]
     Active Substance: VALGANCICLOVIR HYDROCHLORIDE
     Indication: INFECTION PROPHYLAXIS
     Dosage: MONDAY AND THURSDAY, 900 MG
     Route: 048
     Dates: start: 20170529, end: 20170723
  10. CORTANCYL [Concomitant]
     Active Substance: PREDNISONE
     Indication: PROPHYLAXIS AGAINST TRANSPLANT REJECTION
     Dosage: IN THE MORNING THEN FROM 07/21 5 MG, UNIT DOSE: 10 MG
     Route: 048
     Dates: start: 20170529
  11. RANITIDINE (CHLORHYDRATE DE) [Concomitant]
     Active Substance: RANITIDINE HYDROCHLORIDE
     Indication: GASTROOESOPHAGEAL REFLUX DISEASE
     Dosage: 150 MILLIGRAM DAILY; THE EVENING
     Route: 048
     Dates: start: 20170720
  12. FINASTERIDE. [Suspect]
     Active Substance: FINASTERIDE
     Indication: FUNGAL INFECTION
     Dosage: 5 MILLIGRAM DAILY; THE MORNING
     Route: 048
     Dates: start: 20170721

REACTIONS (1)
  - Leukopenia [Recovered/Resolved]

NARRATIVE: CASE EVENT DATE: 20170725
